FAERS Safety Report 8365143-9 (Version None)
Quarter: 2012Q2

REPORT INFORMATION
  Report Type: 
  Country: None (occurrence: None)
  Receive Date: 20120516
  Receipt Date: 20120509
  Transmission Date: 20120825
  Serious: Yes (Other)
  Sender: FDA-Public Use
  Company Number: US-ASTRAZENECA-2012SE29832

PATIENT
  Age: 61 Year
  Sex: Male
  Weight: 90.7 kg

DRUGS (5)
  1. TOPROL-XL [Suspect]
     Indication: HYPERTENSION
     Route: 048
  2. NEXIUM [Suspect]
     Indication: GASTROOESOPHAGEAL REFLUX DISEASE
     Route: 048
  3. CRESTOR [Suspect]
     Indication: BLOOD CHOLESTEROL ABNORMAL
     Route: 048
  4. NIASPAN [Concomitant]
     Indication: BLOOD CHOLESTEROL ABNORMAL
  5. LOTRIL [Concomitant]

REACTIONS (1)
  - MYOCARDIAL INFARCTION [None]
